FAERS Safety Report 7702315-8 (Version None)
Quarter: 2011Q3

REPORT INFORMATION
  Report Type: 
  Country: None (occurrence: None)
  Receive Date: 20110822
  Receipt Date: 20110812
  Transmission Date: 20111222
  Serious: Yes (Other)
  Sender: FDA-Public Use
  Company Number: PHHY2011GB72851

PATIENT
  Age: 68 Year
  Sex: Male

DRUGS (2)
  1. CEFTRIAXONE [Suspect]
     Route: 042
  2. CLINDAMYCIN [Suspect]
     Dosage: 3 DF, QID
     Route: 048
     Dates: start: 20110729

REACTIONS (2)
  - MYALGIA [None]
  - ABASIA [None]
